FAERS Safety Report 11680597 (Version 3)
Quarter: 2015Q4

REPORT INFORMATION
  Report Type: Spontaneous
  Country: US (occurrence: US)
  Receive Date: 20151027
  Receipt Date: 20151110
  Transmission Date: 20160304
  Serious: No
  Sender: FDA-Public Use
  Company Number: US-ELI_LILLY_AND_COMPANY-US201007006813

PATIENT
  Age: 86 Year
  Sex: Female

DRUGS (13)
  1. FORTEO [Suspect]
     Active Substance: TERIPARATIDE
     Dosage: 20 UG, QD
     Route: 058
  2. FORTEO [Suspect]
     Active Substance: TERIPARATIDE
     Dosage: 20 UG, QD
     Route: 058
  3. FORTEO [Suspect]
     Active Substance: TERIPARATIDE
     Dosage: 20 UG, QD
     Dates: start: 20120601
  4. BACLOFEN. [Concomitant]
     Active Substance: BACLOFEN
     Indication: TRIGEMINAL NEURALGIA
  5. FORTEO [Suspect]
     Active Substance: TERIPARATIDE
     Indication: OSTEOPOROSIS
     Dosage: 20 UG, DAILY (1/D)
     Route: 058
     Dates: start: 2010
  6. FORTEO [Suspect]
     Active Substance: TERIPARATIDE
     Dosage: 20 UG, DAILY (1/D)
     Route: 058
  7. FORTEO [Suspect]
     Active Substance: TERIPARATIDE
     Dosage: 20 UG, QD
     Route: 058
  8. FORTEO [Suspect]
     Active Substance: TERIPARATIDE
     Dosage: 20 UG, DAILY (1/D)
     Route: 058
  9. FORTEO [Suspect]
     Active Substance: TERIPARATIDE
     Dosage: 20 UG, DAILY (1/D)
     Route: 058
  10. FORTEO [Suspect]
     Active Substance: TERIPARATIDE
     Dosage: 20 UG, DAILY (1/D)
     Route: 058
  11. FORTEO [Suspect]
     Active Substance: TERIPARATIDE
     Dosage: 20 UG, DAILY (1/D)
     Route: 058
  12. FORTEO [Suspect]
     Active Substance: TERIPARATIDE
     Dosage: 20 UG, DAILY (1/D)
     Route: 058
  13. FORTEO [Suspect]
     Active Substance: TERIPARATIDE
     Dosage: 20 UG, QD
     Route: 058

REACTIONS (27)
  - Fear of falling [Not Recovered/Not Resolved]
  - Pain [Recovering/Resolving]
  - Arthralgia [Not Recovered/Not Resolved]
  - Muscle spasms [Not Recovered/Not Resolved]
  - Pain in extremity [Unknown]
  - Injection site erythema [Unknown]
  - Middle insomnia [Unknown]
  - Burning sensation [Unknown]
  - Arthralgia [Not Recovered/Not Resolved]
  - Arthralgia [Recovered/Resolved]
  - Drug dose omission [Unknown]
  - Musculoskeletal disorder [Unknown]
  - Muscle spasms [Recovering/Resolving]
  - Arthritis [Unknown]
  - Diarrhoea [Unknown]
  - Constipation [Not Recovered/Not Resolved]
  - Injection site pain [Unknown]
  - Bone pain [Recovering/Resolving]
  - Cognitive disorder [Unknown]
  - Drug dose omission [Recovered/Resolved]
  - Dysstasia [Unknown]
  - Paraesthesia [Unknown]
  - Pain in extremity [Not Recovered/Not Resolved]
  - Tic [Unknown]
  - Cataract [Unknown]
  - Feeling abnormal [Not Recovered/Not Resolved]
  - Dizziness [Not Recovered/Not Resolved]

NARRATIVE: CASE EVENT DATE: 20100728
